FAERS Safety Report 25701552 (Version 1)
Quarter: 2025Q3

REPORT INFORMATION
  Report Type: Spontaneous
  Country: US (occurrence: US)
  Receive Date: 20250819
  Receipt Date: 20250819
  Transmission Date: 20251020
  Serious: Yes (Death, Other)
  Sender: AMGEN
  Company Number: US-AMGEN-USASP2025160762

PATIENT

DRUGS (2)
  1. PREDNISONE [Suspect]
     Active Substance: PREDNISONE
     Indication: Immunosuppressant drug therapy
     Route: 065
  2. BELATACEPT [Concomitant]
     Active Substance: BELATACEPT

REACTIONS (11)
  - Death [Fatal]
  - Kidney transplant rejection [Unknown]
  - Post transplant lymphoproliferative disorder [Unknown]
  - Cytomegalovirus viraemia [Unknown]
  - Polyomavirus viraemia [Unknown]
  - Leukopenia [Unknown]
  - Glomerular filtration rate decreased [Unknown]
  - Graft loss [Unknown]
  - Donor specific antibody present [Unknown]
  - Nephropathy [Unknown]
  - Metabolic disorder [Unknown]
